FAERS Safety Report 4530266-9 (Version None)
Quarter: 2004Q4

REPORT INFORMATION
  Report Type: 
  Country: None (occurrence: None)
  Receive Date: 20041215
  Receipt Date: 20041203
  Transmission Date: 20050328
  Serious: Yes (Hospitalization, Other)
  Sender: FDA-Public Use
  Company Number: 2004089442

PATIENT
  Sex: Female
  Weight: 67.1324 kg

DRUGS (4)
  1. NEURONTIN [Suspect]
     Indication: NEUROPATHY
     Dosage: 800 MG (400 MG, 2 IN 1 D), ORAL
     Route: 048
     Dates: start: 20001025
  2. NORVASC [Suspect]
     Indication: BLOOD PRESSURE
     Dosage: 10 MG (10 MG, 2 IN 1 D), ORAL
     Route: 048
  3. CELEBREX [Suspect]
     Indication: ARTHRITIS
     Dosage: 400 MG (200 MG, 2 IN 1 D)
     Dates: start: 20000928, end: 20010827
  4. DONEPEZIL HCL [Suspect]
     Indication: DEMENTIA ALZHEIMER'S TYPE
     Dosage: 10 MG (10 MG, 2 IN 1 D), ORAL
     Route: 048

REACTIONS (14)
  - BREAST CANCER [None]
  - CARDIAC ARREST [None]
  - CATARACT [None]
  - CHEST PAIN [None]
  - DEMENTIA ALZHEIMER'S TYPE [None]
  - DYSPEPSIA [None]
  - FEEDING DISORDER [None]
  - FEELING ABNORMAL [None]
  - KIDNEY INFECTION [None]
  - KNEE ARTHROPLASTY [None]
  - ROTATOR CUFF SYNDROME [None]
  - URINARY TRACT INFECTION [None]
  - VASCULAR BYPASS GRAFT [None]
  - WEIGHT DECREASED [None]
